FAERS Safety Report 13770094 (Version 1)
Quarter: 2017Q3

REPORT INFORMATION
  Report Type: Spontaneous
  Country: US (occurrence: US)
  Receive Date: 20170719
  Receipt Date: 20170719
  Transmission Date: 20171127
  Serious: Yes (Hospitalization)
  Sender: FDA-Public Use
  Company Number: None

PATIENT
  Age: 61 Year
  Sex: Female

DRUGS (1)
  1. POMALYST [Suspect]
     Active Substance: POMALIDOMIDE
     Indication: PLASMA CELL MYELOMA
     Route: 048
     Dates: start: 20170518

REACTIONS (6)
  - Septic shock [None]
  - Sputum discoloured [None]
  - Cough [None]
  - Febrile neutropenia [None]
  - Acute kidney injury [None]
  - Pseudomonal sepsis [None]

NARRATIVE: CASE EVENT DATE: 20170617
